FAERS Safety Report 24062181 (Version 3)
Quarter: 2024Q3

REPORT INFORMATION
  Report Type: Spontaneous
  Country: IT (occurrence: IT)
  Receive Date: 20240708
  Receipt Date: 20240918
  Transmission Date: 20241016
  Serious: Yes (Other)
  Sender: PFIZER
  Company Number: IT-PFM-2024-03846

PATIENT
  Age: 40 Year
  Sex: Female

DRUGS (4)
  1. ENCORAFENIB [Suspect]
     Active Substance: ENCORAFENIB
     Indication: Metastatic malignant melanoma
     Dosage: 450 MG, QD (1/DAY)
     Route: 065
     Dates: start: 20230429
  2. ENCORAFENIB [Suspect]
     Active Substance: ENCORAFENIB
     Indication: BRAF V600E mutation positive
  3. BINIMETINIB [Suspect]
     Active Substance: BINIMETINIB
     Indication: Metastatic malignant melanoma
     Dosage: 45 MG, BID (2/DAY)
     Route: 065
     Dates: start: 20230429
  4. BINIMETINIB [Suspect]
     Active Substance: BINIMETINIB
     Indication: BRAF V600E mutation positive

REACTIONS (3)
  - Sarcoidosis [Recovered/Resolved]
  - Radiation necrosis [Unknown]
  - Brain oedema [Unknown]

NARRATIVE: CASE EVENT DATE: 20231001
